FAERS Safety Report 24400116 (Version 6)
Quarter: 2025Q1

REPORT INFORMATION
  Report Type: Spontaneous
  Country: JP (occurrence: JP)
  Receive Date: 20241005
  Receipt Date: 20250214
  Transmission Date: 20250409
  Serious: Yes (Death, Life-Threatening, Other)
  Sender: JAZZ
  Company Number: JP-JAZZ PHARMACEUTICALS-2024-JP-017132

PATIENT
  Age: 75 Year
  Sex: Female
  Weight: 41.9 kg

DRUGS (1)
  1. VYXEOS [Suspect]
     Active Substance: CYTARABINE\DAUNORUBICIN
     Indication: Acute myeloid leukaemia
     Route: 042
     Dates: start: 20240925, end: 20240925

REACTIONS (2)
  - Acute myeloid leukaemia [Fatal]
  - Tumour lysis syndrome [Unknown]

NARRATIVE: CASE EVENT DATE: 20240101
